FAERS Safety Report 7042697-6 (Version None)
Quarter: 2010Q4

REPORT INFORMATION
  Report Type: 
  Country: None (occurrence: None)
  Receive Date: 20101013
  Receipt Date: 20100507
  Transmission Date: 20110411
  Serious: No
  Sender: FDA-Public Use
  Company Number: US-ASTRAZENECA-2010SE21040

PATIENT
  Age: 17 Year
  Sex: Female

DRUGS (1)
  1. SYMBICORT [Suspect]
     Dosage: 160/4.5 UG TWO PUFFS
     Route: 055

REACTIONS (3)
  - DYSPNOEA [None]
  - SWELLING FACE [None]
  - URTICARIA [None]
